FAERS Safety Report 23090191 (Version 1)
Quarter: 2023Q4

REPORT INFORMATION
  Report Type: Spontaneous
  Country: IT (occurrence: IT)
  Receive Date: 20231020
  Receipt Date: 20231020
  Transmission Date: 20240109
  Serious: Yes (Other)
  Sender: FDA-Public Use
  Company Number: None

PATIENT
  Age: 44 Year
  Sex: Female
  Weight: 56 kg

DRUGS (2)
  1. EPIRUBICIN [Suspect]
     Active Substance: EPIRUBICIN
     Indication: Breast cancer
     Dosage: I CYCLE - START OF THERAPY 07/07/2023 - DENSE DOSES OF THERAPY EVERY 14 DAYS  , EPIRUBICINA
     Dates: start: 20230707, end: 20230707
  2. CYCLOPHOSPHAMIDE [Suspect]
     Active Substance: CYCLOPHOSPHAMIDE
     Indication: Breast cancer
     Dosage: CYCLE - START OF THERAPY 07/07/2023 - DENSE DOSES OF THERAPY EVERY 14 DAYS   , CICLOFOSFAMIDE
     Dates: start: 20230707, end: 20230707

REACTIONS (4)
  - Neutropenia [Recovering/Resolving]
  - Thrombocytopenia [Recovering/Resolving]
  - Vomiting [Recovering/Resolving]
  - Nausea [Recovering/Resolving]

NARRATIVE: CASE EVENT DATE: 20230708
